FAERS Safety Report 13669642 (Version 2)
Quarter: 2017Q4

REPORT INFORMATION
  Report Type: Spontaneous
  Country: AR (occurrence: AR)
  Receive Date: 20170620
  Receipt Date: 20171031
  Transmission Date: 20180320
  Serious: Yes (Other)
  Sender: FDA-Public Use
  Company Number: AR-AMGEN-ARGSP2017092217

PATIENT
  Age: 54 Year
  Sex: Female

DRUGS (1)
  1. ENBREL [Suspect]
     Active Substance: ETANERCEPT
     Indication: RHEUMATOID ARTHRITIS
     Dosage: 50 MG, WEEKLY
     Route: 065
     Dates: start: 20150414

REACTIONS (4)
  - Influenza [Recovering/Resolving]
  - Infarction [Recovering/Resolving]
  - Speech disorder [Recovering/Resolving]
  - Sensitivity to weather change [Recovering/Resolving]

NARRATIVE: CASE EVENT DATE: 20170530
